FAERS Safety Report 6979589-4 (Version None)
Quarter: 2010Q3

REPORT INFORMATION
  Report Type: 
  Country: None (occurrence: None)
  Receive Date: 20100910
  Receipt Date: 20100910
  Transmission Date: 20110219
  Serious: Yes (Life-Threatening, Hospitalization, Disabling, Other)
  Sender: FDA-Public Use
  Company Number: None

PATIENT
  Age: 21 Year
  Sex: Female
  Weight: 54.5 kg

DRUGS (1)
  1. YASMIN [Suspect]
     Indication: CONTRACEPTION
     Dosage: 1 BIRTH CONTROL PILL ONCE DAILY BY MOUTH
     Route: 048
     Dates: start: 20070601, end: 20100701

REACTIONS (6)
  - APPARENT LIFE THREATENING EVENT [None]
  - CHOLECYSTECTOMY [None]
  - CHOLELITHIASIS [None]
  - GASTROINTESTINAL DISORDER [None]
  - PANCREATITIS [None]
  - SCAR [None]
